FAERS Safety Report 25378369 (Version 1)
Quarter: 2025Q2

REPORT INFORMATION
  Report Type: Other
  Country: US (occurrence: US)
  Receive Date: 20250530
  Receipt Date: 20250530
  Transmission Date: 20250717
  Serious: No
  Sender: APOTEX
  Company Number: US-APOTEX-2025AP007887

PATIENT
  Sex: Female

DRUGS (2)
  1. DASATINIB [Suspect]
     Active Substance: DASATINIB
     Indication: Product used for unknown indication
     Route: 065
  2. DASATINIB [Suspect]
     Active Substance: DASATINIB
     Route: 065

REACTIONS (7)
  - Condition aggravated [Unknown]
  - Swelling face [Unknown]
  - Periorbital oedema [Unknown]
  - Product substitution issue [Unknown]
  - Weight increased [Unknown]
  - Peripheral swelling [Unknown]
  - Therapeutic response decreased [Unknown]
